FAERS Safety Report 5428871-0 (Version None)
Quarter: 2007Q3

REPORT INFORMATION
  Report Type: 
  Country: None (occurrence: None)
  Receive Date: 20070824
  Receipt Date: 20070809
  Transmission Date: 20080115
  Serious: Yes (Hospitalization)
  Sender: FDA-Public Use
  Company Number: DSA_30436_2007

PATIENT
  Age: 55 Year
  Sex: Male

DRUGS (12)
  1. DILTIAZEM [Suspect]
     Indication: HYPERTENSION
     Dosage: 120 MG QD ORAL
     Route: 048
     Dates: start: 20070426
  2. ARAVA [Suspect]
     Indication: PSORIATIC ARTHROPATHY
     Dosage: 20 MG QD ORAL
     Route: 048
     Dates: start: 20070507
  3. CYCLOSPORINE [Concomitant]
  4. BENDROFLUAZIDE [Concomitant]
  5. LANSOPRAZOLE [Concomitant]
  6. NIFEDIPINE [Concomitant]
  7. FLUZAMIDE [Concomitant]
  8. ATENOLOL [Concomitant]
  9. SIMVASTATIN [Concomitant]
  10. QUININE [Concomitant]
  11. FLUOXETINE [Concomitant]
  12. CODEINE PHOSPHATE AND ACETAMINOPHEN [Concomitant]

REACTIONS (5)
  - DRUG ERUPTION [None]
  - EXFOLIATIVE RASH [None]
  - PEMPHIGOID [None]
  - RASH ERYTHEMATOUS [None]
  - STAPHYLOCOCCAL SCALDED SKIN SYNDROME [None]
